FAERS Safety Report 23051010 (Version 4)
Quarter: 2024Q2

REPORT INFORMATION
  Report Type: Spontaneous
  Country: US (occurrence: US)
  Receive Date: 20231010
  Receipt Date: 20240430
  Transmission Date: 20240716
  Serious: No
  Sender: FDA-Public Use
  Company Number: US-SA-SAC20231005001080

PATIENT
  Age: 75 Year
  Sex: Female

DRUGS (61)
  1. DUPIXENT [Suspect]
     Active Substance: DUPILUMAB
     Indication: Dermatitis atopic
     Dosage: 600 MG, 1X
     Route: 058
  2. DUPIXENT [Suspect]
     Active Substance: DUPILUMAB
     Dosage: 300 MG, QOW
     Route: 058
     Dates: start: 20231003
  3. BETAMETHASONE DIPROPIONATE [Concomitant]
     Active Substance: BETAMETHASONE DIPROPIONATE
     Dosage: UNK
  4. BUSPIRONE [Concomitant]
     Active Substance: BUSPIRONE HYDROCHLORIDE
     Dosage: UNK
  5. BUSPIRONE [Concomitant]
     Active Substance: BUSPIRONE HYDROCHLORIDE
  6. BUSPIRONE [Concomitant]
     Active Substance: BUSPIRONE HYDROCHLORIDE
  7. CYCLOSPORINE [Concomitant]
     Active Substance: CYCLOSPORINE
     Dosage: UNK
  8. CYCLOSPORINE [Concomitant]
     Active Substance: CYCLOSPORINE
  9. CYCLOSPORINE [Concomitant]
     Active Substance: CYCLOSPORINE
  10. EPINEPHRINE [Concomitant]
     Active Substance: EPINEPHRINE
     Dosage: UNK
  11. EPINEPHRINE [Concomitant]
     Active Substance: EPINEPHRINE
  12. EPINEPHRINE [Concomitant]
     Active Substance: EPINEPHRINE
  13. ESTRADIOL [Concomitant]
     Active Substance: ESTRADIOL
     Dosage: UNK
  14. ESTRADIOL [Concomitant]
     Active Substance: ESTRADIOL
  15. ESTRADIOL [Concomitant]
     Active Substance: ESTRADIOL
  16. FLUCONAZOLE [Concomitant]
     Active Substance: FLUCONAZOLE
     Dosage: UNK
  17. FLUCONAZOLE [Concomitant]
     Active Substance: FLUCONAZOLE
  18. FLUCONAZOLE [Concomitant]
     Active Substance: FLUCONAZOLE
  19. FLUCONAZOLE [Concomitant]
     Active Substance: FLUCONAZOLE
     Dosage: UNK
  20. FLUCONAZOLE [Concomitant]
     Active Substance: FLUCONAZOLE
  21. LEVOTHYROXINE [Concomitant]
     Active Substance: LEVOTHYROXINE\LEVOTHYROXINE SODIUM
     Dosage: UNK
  22. LEVOTHYROXINE [Concomitant]
     Active Substance: LEVOTHYROXINE\LEVOTHYROXINE SODIUM
  23. HYDROXYZINE HYDROCHLORIDE [Concomitant]
     Active Substance: HYDROXYZINE HYDROCHLORIDE
     Dosage: UNK
  24. HYDROXYZINE HYDROCHLORIDE [Concomitant]
     Active Substance: HYDROXYZINE HYDROCHLORIDE
  25. LEVOTHYROXINE [Concomitant]
     Active Substance: LEVOTHYROXINE\LEVOTHYROXINE SODIUM
     Dosage: UNK
  26. LEVOTHYROXINE [Concomitant]
     Active Substance: LEVOTHYROXINE\LEVOTHYROXINE SODIUM
  27. METHYLPHENIDATE [Concomitant]
     Active Substance: METHYLPHENIDATE
  28. MULTI WOMEN [Concomitant]
     Dosage: UNK
  29. NYSTATIN [Concomitant]
     Active Substance: NYSTATIN
     Dosage: UNK
  30. NYSTATIN [Concomitant]
     Active Substance: NYSTATIN
  31. NYSTATIN [Concomitant]
     Active Substance: NYSTATIN
  32. PREDNISONE [Concomitant]
     Active Substance: PREDNISONE
     Dosage: UNK
  33. PREDNISONE [Concomitant]
     Active Substance: PREDNISONE
  34. PREDNISONE [Concomitant]
     Active Substance: PREDNISONE
  35. PREGABALIN [Concomitant]
     Active Substance: PREGABALIN
     Dosage: UNK
  36. PREGABALIN [Concomitant]
     Active Substance: PREGABALIN
  37. PREGABALIN [Concomitant]
     Active Substance: PREGABALIN
  38. ROPINIROLE [Concomitant]
     Active Substance: ROPINIROLE
     Dosage: UNK
  39. ROPINIROLE [Concomitant]
     Active Substance: ROPINIROLE
  40. ROPINIROLE [Concomitant]
     Active Substance: ROPINIROLE
  41. TEMAZEPAM [Concomitant]
     Active Substance: TEMAZEPAM
     Dosage: UNK
  42. TEMAZEPAM [Concomitant]
     Active Substance: TEMAZEPAM
  43. TEMAZEPAM [Concomitant]
     Active Substance: TEMAZEPAM
  44. TRIAZOLAM [Concomitant]
     Active Substance: TRIAZOLAM
     Dosage: UNK
  45. TRIAZOLAM [Concomitant]
     Active Substance: TRIAZOLAM
  46. TRIAZOLAM [Concomitant]
     Active Substance: TRIAZOLAM
  47. XIFAXAN [Concomitant]
     Active Substance: RIFAXIMIN
     Dosage: UNK
  48. XIFAXAN [Concomitant]
     Active Substance: RIFAXIMIN
  49. XIFAXAN [Concomitant]
     Active Substance: RIFAXIMIN
  50. XOLAIR [Concomitant]
     Active Substance: OMALIZUMAB
     Dosage: UNK
  51. XOLAIR [Concomitant]
     Active Substance: OMALIZUMAB
  52. XOLAIR [Concomitant]
     Active Substance: OMALIZUMAB
  53. ZOLPIDEM [Concomitant]
     Active Substance: ZOLPIDEM TARTRATE
     Dosage: UNK
  54. ZOLPIDEM [Concomitant]
     Active Substance: ZOLPIDEM TARTRATE
  55. ZOLPIDEM [Concomitant]
     Active Substance: ZOLPIDEM TARTRATE
  56. METHYLPHENIDATE [Concomitant]
     Active Substance: METHYLPHENIDATE
     Dosage: UNK
  57. METHYLPHENIDATE [Concomitant]
     Active Substance: METHYLPHENIDATE
  58. OXYCODONE/APAP [Concomitant]
     Active Substance: ACETAMINOPHEN\OXYCODONE HYDROCHLORIDE
     Dosage: UNK
  59. XOLAIR [Concomitant]
     Active Substance: OMALIZUMAB
     Dosage: UNK
  60. ESTRADIOL [Concomitant]
     Active Substance: ESTRADIOL
  61. APAP [Concomitant]
     Active Substance: ACETAMINOPHEN
     Dosage: 20MG

REACTIONS (11)
  - Sleep disorder [Not Recovered/Not Resolved]
  - Nasal congestion [Not Recovered/Not Resolved]
  - Impaired quality of life [Not Recovered/Not Resolved]
  - Asthma [Not Recovered/Not Resolved]
  - Sleep disorder due to a general medical condition [Not Recovered/Not Resolved]
  - Gastrointestinal bacterial infection [Not Recovered/Not Resolved]
  - Upper respiratory tract infection [Not Recovered/Not Resolved]
  - Pruritus [Unknown]
  - Hypersensitivity [Not Recovered/Not Resolved]
  - Rash [Not Recovered/Not Resolved]
  - Therapeutic response decreased [Unknown]

NARRATIVE: CASE EVENT DATE: 20230901
